FAERS Safety Report 6519731-2 (Version None)
Quarter: 2009Q4

REPORT INFORMATION
  Report Type: 
  Country: None (occurrence: None)
  Receive Date: 20091228
  Receipt Date: 20091228
  Transmission Date: 20100525
  Serious: Yes (Life-Threatening, Hospitalization, Disabling, Other)
  Sender: FDA-Public Use
  Company Number: None

PATIENT
  Age: 53 Year
  Sex: Male
  Weight: 74.8435 kg

DRUGS (3)
  1. GEODON [Suspect]
     Indication: DEMENTIA
     Dosage: 60 MG ONE TWICE A DAY
     Dates: start: 20090613, end: 20090614
  2. GEODON [Suspect]
     Indication: PSYCHOTIC DISORDER
     Dosage: 60 MG ONE TWICE A DAY
     Dates: start: 20090613, end: 20090614
  3. GEODON [Suspect]
     Dosage: 20MG ONE TWICE A DAY
     Dates: start: 20090615, end: 20090618

REACTIONS (21)
  - AGITATION [None]
  - ALCOHOL USE [None]
  - AMNESIA [None]
  - ANIMAL BITE [None]
  - CHEST PAIN [None]
  - CONFUSIONAL STATE [None]
  - DEMENTIA [None]
  - DEMENTIA ALZHEIMER'S TYPE [None]
  - DEPRESSION [None]
  - DISTURBANCE IN ATTENTION [None]
  - FAECAL INCONTINENCE [None]
  - FEELING ABNORMAL [None]
  - HALLUCINATION, AUDITORY [None]
  - HEADACHE [None]
  - HOSTILITY [None]
  - IMPRISONMENT [None]
  - MEMORY IMPAIRMENT [None]
  - MOOD SWINGS [None]
  - MOVEMENT DISORDER [None]
  - PSYCHOTIC DISORDER [None]
  - THINKING ABNORMAL [None]
